FAERS Safety Report 24531231 (Version 2)
Quarter: 2025Q3

REPORT INFORMATION
  Report Type: Spontaneous
  Country: EU (occurrence: EU)
  Receive Date: 20241022
  Receipt Date: 20250802
  Transmission Date: 20251020
  Serious: Yes (Death)
  Sender: ALEXION PHARMACEUTICALS
  Company Number: None

PATIENT
  Age: 68 Year
  Sex: Female
  Weight: 64 kg

DRUGS (7)
  1. TICAGRELOR [Suspect]
     Active Substance: TICAGRELOR
     Indication: Ischaemic stroke
     Dates: start: 20240828, end: 20240829
  2. ENOXAPARIN SODIUM [Suspect]
     Active Substance: ENOXAPARIN SODIUM
     Indication: Ischaemic stroke
     Dosage: 4000 INTERNATIONAL UNIT, QD
     Dates: start: 20240902, end: 20240905
  3. ENOXAPARIN SODIUM [Suspect]
     Active Substance: ENOXAPARIN SODIUM
     Dosage: 7000 INTERNATIONAL UNIT, Q12H
     Dates: start: 20240824, end: 20240830
  4. KARDEGIC [Suspect]
     Active Substance: ASPIRIN DL-LYSINE
     Indication: Ischaemic stroke
     Dates: start: 20240827, end: 20240828
  5. LEVOTHYROXINE [Concomitant]
     Active Substance: LEVOTHYROXINE
     Indication: Thyroidectomy
  6. ATORVASTATIN [Concomitant]
     Active Substance: ATORVASTATIN
     Indication: Cardiovascular event prophylaxis
     Dates: start: 20240827, end: 20240828
  7. ACETAMINOPHEN [Concomitant]
     Active Substance: ACETAMINOPHEN
     Indication: Back pain
     Dates: start: 20240827, end: 20240827

REACTIONS (1)
  - Gingival bleeding [Fatal]

NARRATIVE: CASE EVENT DATE: 20240829
